FAERS Safety Report 6946066-6 (Version None)
Quarter: 2010Q3

REPORT INFORMATION
  Report Type: 
  Country: None (occurrence: None)
  Receive Date: 20100827
  Receipt Date: 20100809
  Transmission Date: 20110219
  Serious: No
  Sender: FDA-Public Use
  Company Number: A0851848A

PATIENT
  Sex: Female

DRUGS (1)
  1. ZOVIRAX [Suspect]
     Indication: HERPES SIMPLEX
     Route: 061
     Dates: start: 20100318

REACTIONS (4)
  - ILL-DEFINED DISORDER [None]
  - INSOMNIA [None]
  - PAIN [None]
  - PRODUCT QUALITY ISSUE [None]
